FAERS Safety Report 11810186 (Version 1)
Quarter: 2015Q4

REPORT INFORMATION
  Report Type: Spontaneous
  Country: US (occurrence: None)
  Receive Date: 20151207
  Receipt Date: 20151207
  Transmission Date: 20160305
  Serious: Yes (Other)
  Sender: FDA-Public Use
  Company Number: None

PATIENT
  Age: 46 Year
  Sex: Female
  Weight: 79.83 kg

DRUGS (17)
  1. IMITREX [Concomitant]
     Active Substance: SUMATRIPTAN\SUMATRIPTAN SUCCINATE
  2. CHROMIUM PIOLATE [Concomitant]
  3. LORZONE [Suspect]
     Active Substance: CHLORZOXAZONE
     Indication: MUSCLE SPASMS
     Dosage: LESS THAN 1 DAY - 1 DOSE?
     Route: 048
  4. ADDERAL XR [Concomitant]
  5. ONCE DAILY GENERIC WOMEN^S VITAMIN [Concomitant]
  6. VITAMIN D3 [Concomitant]
     Active Substance: CHOLECALCIFEROL
  7. CRANBERRY. [Concomitant]
     Active Substance: CRANBERRY
  8. PROBIOTIC (ALIGN) [Concomitant]
  9. LAMICTAL [Concomitant]
     Active Substance: LAMOTRIGINE
  10. FISH OIL [Concomitant]
     Active Substance: FISH OIL
  11. NEURONTIN [Concomitant]
     Active Substance: GABAPENTIN
  12. VITAMIN B12 [Concomitant]
     Active Substance: CYANOCOBALAMIN
  13. APPLE CIDER VINGEGAR [Concomitant]
  14. ZOLOFT [Concomitant]
     Active Substance: SERTRALINE HYDROCHLORIDE
  15. MOTRIN [Concomitant]
     Active Substance: IBUPROFEN
  16. XANAX [Concomitant]
     Active Substance: ALPRAZOLAM
  17. AMBIEN [Concomitant]
     Active Substance: ZOLPIDEM TARTRATE

REACTIONS (3)
  - Headache [None]
  - Disease recurrence [None]
  - Drug ineffective [None]

NARRATIVE: CASE EVENT DATE: 20151204
